FAERS Safety Report 11335286 (Version 1)
Quarter: 2015Q3

REPORT INFORMATION
  Report Type: Spontaneous
  Country: US (occurrence: US)
  Receive Date: 20150804
  Receipt Date: 20150804
  Transmission Date: 20151125
  Serious: No
  Sender: FDA-Public Use
  Company Number: US-BIOGENIDEC-2015BI107978

PATIENT
  Sex: Female

DRUGS (2)
  1. AVONEX [Suspect]
     Active Substance: INTERFERON BETA-1A
     Indication: MULTIPLE SCLEROSIS
     Route: 030
  2. BETASERON [Concomitant]
     Active Substance: INTERFERON BETA-1B

REACTIONS (2)
  - Memory impairment [Recovered/Resolved with Sequelae]
  - Influenza like illness [Unknown]
